FAERS Safety Report 4957216-5 (Version None)
Quarter: 2006Q1

REPORT INFORMATION
  Report Type: 
  Country: None (occurrence: None)
  Receive Date: 20060329
  Receipt Date: 20050929
  Transmission Date: 20060701
  Serious: Yes (Death, Hospitalization, Disabling, Other)
  Sender: FDA-Public Use
  Company Number: US-MERCK-0510USA00423

PATIENT
  Age: 43 Year
  Sex: Female
  Weight: 89 kg

DRUGS (1)
  1. VIOXX [Suspect]
     Route: 048
     Dates: start: 20030201, end: 20040901

REACTIONS (10)
  - ACUTE MYOCARDIAL INFARCTION [None]
  - ADVERSE EVENT [None]
  - ARTERIOSCLEROSIS CORONARY ARTERY [None]
  - BASEDOW'S DISEASE [None]
  - DEPRESSION [None]
  - HYPERTENSION [None]
  - MIGRAINE WITHOUT AURA [None]
  - MYOCARDIAL INFARCTION [None]
  - PANCREATIC PSEUDOCYST [None]
  - PANCREATITIS [None]
